FAERS Safety Report 11785751 (Version 1)
Quarter: 2015Q4

REPORT INFORMATION
  Report Type: Spontaneous
  Country: CH (occurrence: CH)
  Receive Date: 20151130
  Receipt Date: 20151130
  Transmission Date: 20160305
  Serious: Yes (Hospitalization, Other)
  Sender: FDA-Public Use
  Company Number: CH-PFIZER INC-2015397055

PATIENT
  Age: 41 Year
  Sex: Female

DRUGS (8)
  1. ADRIBLASTIN [Suspect]
     Active Substance: DOXORUBICIN HYDROCHLORIDE
     Dosage: DOSAGE UNKNOWN, PLANNED TREATMENT FOR 4 CYCLES, NEWEST ADMINISTRATION ON 06OCT2015
     Route: 041
  2. URBANYL [Concomitant]
     Active Substance: CLOBAZAM
     Dosage: 10 MG, 2X/DAY
     Route: 048
  3. REMERON [Concomitant]
     Active Substance: MIRTAZAPINE
     Dosage: 30 MG, 1X/DAY
     Route: 048
  4. PACLITAXEL ACTAVIS [Suspect]
     Active Substance: PACLITAXEL
     Dosage: DOSE UNK, PLANNED TREATMENT FOR 12 WEEKS, NEWEST ADMINISTRATION ON 06OCT2015
     Route: 041
  5. TEMESTA [Concomitant]
     Active Substance: LORAZEPAM
     Dosage: 5 MG, 1X/DAY
     Route: 048
  6. KEPPRA [Concomitant]
     Active Substance: LEVETIRACETAM
     Dosage: 250 MG, 2X/DAY
     Route: 048
  7. PANTOZOL [Concomitant]
     Active Substance: PANTOPRAZOLE SODIUM
     Dosage: 40 MG, 1X/DAY
     Route: 048
  8. ENDOXAN [Suspect]
     Active Substance: CYCLOPHOSPHAMIDE
     Dosage: DOSAGE UNKNOWN, PLANNED TREATMENT FOR 4 CYCLES, NEWEST ADMINISTRATION ON 06OCT2015
     Route: 041

REACTIONS (3)
  - Hepatocellular injury [Recovering/Resolving]
  - Asthenia [Recovered/Resolved]
  - Pyrexia [Recovered/Resolved]

NARRATIVE: CASE EVENT DATE: 20151009
